FAERS Safety Report 10029767 (Version 1)
Quarter: 2014Q1

REPORT INFORMATION
  Report Type: Spontaneous
  Country: US (occurrence: None)
  Receive Date: 20140321
  Receipt Date: 20140321
  Transmission Date: 20141002
  Serious: Yes (Hospitalization)
  Sender: FDA-Public Use
  Company Number: None

PATIENT
  Age: 55 Year
  Sex: Male
  Weight: 81.8 kg

DRUGS (1)
  1. WARFARIN [Suspect]
     Route: 048

REACTIONS (7)
  - Toxicity to various agents [None]
  - Hepatic cirrhosis [None]
  - Hypoaesthesia [None]
  - Pain [None]
  - Paraesthesia [None]
  - Gait disturbance [None]
  - International normalised ratio increased [None]
